FAERS Safety Report 11585526 (Version 10)
Quarter: 2015Q4

REPORT INFORMATION
  Report Type: Spontaneous
  Country: US (occurrence: US)
  Receive Date: 20151001
  Receipt Date: 20151217
  Transmission Date: 20160304
  Serious: Yes (Hospitalization, Other)
  Sender: FDA-Public Use
  Company Number: US-AMGEN-USASP2015100727

PATIENT
  Age: 77 Year
  Sex: Male
  Weight: 126.8 kg

DRUGS (28)
  1. HEPARIN [Concomitant]
     Active Substance: HEPARIN SODIUM
     Dosage: 30-50 UNITS, FLUSH PER PROTOCOL
     Route: 042
  2. LIPITOR [Concomitant]
     Active Substance: ATORVASTATIN CALCIUM
     Dosage: 40 MG, QHS
     Route: 048
  3. TOPROL XL [Concomitant]
     Active Substance: METOPROLOL SUCCINATE
     Dosage: 25 MG, 1 TAB BY MOUTH TWO TIMES PER DAY
     Route: 048
     Dates: start: 201507
  4. EFFEXOR [Concomitant]
     Active Substance: VENLAFAXINE HYDROCHLORIDE
     Dosage: 37.5 MG, ONE CAPSULE ONCE A DAY, DAILY
     Route: 048
     Dates: start: 201505
  5. ERGOCALCIFEROL. [Concomitant]
     Active Substance: ERGOCALCIFEROL
     Dosage: 50000 UNITS, MONTHUR
     Route: 048
  6. ALBUTEROL HFA [Concomitant]
     Active Substance: ALBUTEROL SULFATE
     Indication: DYSPNOEA
     Dosage: 108 MCG 1-2 PUFF, Q4HPRN
  7. MIDODRINE [Concomitant]
     Active Substance: MIDODRINE
     Dosage: 10 MG, ONCE PER DAY ON MON WED FRI SAT, PRIOR TO DIALYSIS
     Route: 048
     Dates: start: 201508
  8. MIDODRINE [Concomitant]
     Active Substance: MIDODRINE
     Dosage: 5 MG, 2 TABS BY MOUTH AS DIRECTED
     Route: 048
  9. METOPROLOL [Concomitant]
     Active Substance: METOPROLOL
     Dosage: 25 MG, TWICE DAILY
     Route: 048
  10. SODIUM CHLORIDE. [Concomitant]
     Active Substance: SODIUM CHLORIDE
     Dosage: 10 ML, FLUSH PER PROTOCOL
     Route: 042
  11. PROCRIT [Suspect]
     Active Substance: ERYTHROPOIETIN
     Indication: NEPHROGENIC ANAEMIA
     Dosage: 20000 UNIT, EVERY 1-2 WEEKS AS NEEDED
     Route: 058
     Dates: start: 201504
  12. COUMADIN [Concomitant]
     Active Substance: WARFARIN SODIUM
     Indication: ATRIAL FIBRILLATION
     Dosage: 5 MG, ONCE
     Route: 048
  13. ASPIRIN                            /00002701/ [Concomitant]
     Active Substance: ASPIRIN
     Indication: ATRIAL FIBRILLATION
     Dosage: 81 MG, 1 TAB BY MOUTH EVERY DAY WITH BREAKFAST, DAILY
     Route: 048
     Dates: start: 201409
  14. PHOSLO [Concomitant]
     Active Substance: CALCIUM ACETATE
     Dosage: 667 MG, 1 CAP WITH EACH MEAL
     Route: 048
  15. DUONEB [Concomitant]
     Active Substance: ALBUTEROL SULFATE\IPRATROPIUM BROMIDE
     Dosage: 3 ML, Q4H WHILE AWAKE
  16. OMEGA 3 ACID ETHYL ESTERS [Concomitant]
     Active Substance: OMEGA-3-ACID ETHYL ESTERS
     Dosage: 1 G, 2 CAPSULES TWICE DAILY
     Route: 048
  17. REGLAN [Concomitant]
     Active Substance: METOCLOPRAMIDE HYDROCHLORIDE
     Dosage: 5 MG, PRN X 1
     Route: 042
  18. TYLENOL [Concomitant]
     Active Substance: ACETAMINOPHEN
     Dosage: 325-650 MG, Q4HPR
     Route: 048
  19. PROCRIT [Suspect]
     Active Substance: ERYTHROPOIETIN
     Indication: HAEMODIALYSIS
     Dosage: UNK, WEEKLY
     Route: 058
  20. DULCOLAX (BISACODYL) [Concomitant]
     Active Substance: BISACODYL
     Dosage: 10 MG, DAILY PRN
     Route: 054
  21. PROSCAR [Concomitant]
     Active Substance: FINASTERIDE
     Dosage: 5 MG, QPM, EVERY DAY
     Route: 048
  22. AMIODARONE [Concomitant]
     Active Substance: AMIODARONE
     Dosage: 200 MG, 1 TABLET EVERY MORNING AND ONE HALF TABLET EVERY EVENING
     Route: 048
  23. COUMADIN [Concomitant]
     Active Substance: WARFARIN SODIUM
     Dosage: 2.5 MG, ONCE DAILY IN THE EVENING
     Route: 048
  24. XYLOCAINE [Concomitant]
     Active Substance: LIDOCAINE HYDROCHLORIDE
     Dosage: 5 ML, IV THERAPY
     Route: 023
  25. TAMSULOSIN [Concomitant]
     Active Substance: TAMSULOSIN
     Dosage: 0.4 MG, ONE CAPSULE EVERY DAY
     Route: 048
     Dates: start: 201504
  26. ZYLOPRIM [Concomitant]
     Active Substance: ALLOPURINOL
     Dosage: 100 MG, ONCE PER DAY
     Route: 048
  27. PACERONE [Concomitant]
     Active Substance: AMIODARONE HYDROCHLORIDE
     Dosage: 100 MG, QPM
     Route: 048
  28. XYLOCAINE [Concomitant]
     Active Substance: LIDOCAINE HYDROCHLORIDE
     Dosage: 0.5 ML, IV THERAPY
     Route: 023

REACTIONS (25)
  - Poikilocytosis [Unknown]
  - Transfusion [Not Recovered/Not Resolved]
  - Monocytosis [Unknown]
  - Vascular anastomosis [Unknown]
  - Stent placement [Unknown]
  - Unevaluable event [Unknown]
  - Leukocytosis [Unknown]
  - Neutrophilia [Unknown]
  - Anaemia [Recovered/Resolved]
  - Lymphocyte count increased [Not Recovered/Not Resolved]
  - Arteriovenous fistula operation [Unknown]
  - Gastric mucosal hypertrophy [Unknown]
  - Colon adenoma [Not Recovered/Not Resolved]
  - Drug effect decreased [Unknown]
  - Duodenitis [Unknown]
  - Fatigue [Not Recovered/Not Resolved]
  - Haemorrhage [Unknown]
  - Blood folate decreased [Unknown]
  - Reticulocyte count decreased [Unknown]
  - Polypectomy [Unknown]
  - Aplasia pure red cell [Recovered/Resolved]
  - Reactive gastropathy [Unknown]
  - Erythroid series abnormal [Not Recovered/Not Resolved]
  - Macrophages increased [Not Recovered/Not Resolved]
  - Megakaryocytes abnormal [Not Recovered/Not Resolved]

NARRATIVE: CASE EVENT DATE: 20140103
